FAERS Safety Report 9197134 (Version 2)
Quarter: 2013Q4

REPORT INFORMATION
  Report Type: Spontaneous
  Country: US (occurrence: US)
  Receive Date: 20130328
  Receipt Date: 20131126
  Transmission Date: 20140711
  Serious: Yes (Other)
  Sender: FDA-Public Use
  Company Number: US-BAYER-2013-038714

PATIENT
  Age: 20 Year
  Sex: Female

DRUGS (7)
  1. YAZ [Suspect]
     Dosage: UNK
  2. YASMIN [Suspect]
     Dosage: UNK
  3. OCELLA [Suspect]
     Dosage: UNK
  4. OXYCODONE/APAP [Concomitant]
     Dosage: 5-325 MG
     Dates: start: 20090828
  5. PROMETHAZINE [Concomitant]
     Dosage: 25 MG, UNK
     Dates: start: 20090828
  6. ADIPEX [Concomitant]
     Dosage: UNK
     Dates: start: 20090909
  7. TRI-SPRINTEC [Concomitant]

REACTIONS (5)
  - Gallbladder injury [None]
  - Injury [None]
  - Pain [None]
  - Cholecystitis chronic [None]
  - Pain [None]
